FAERS Safety Report 6620961-X (Version None)
Quarter: 2010Q1

REPORT INFORMATION
  Report Type: 
  Country: None (occurrence: None)
  Receive Date: 20100309
  Receipt Date: 20100304
  Transmission Date: 20100710
  Serious: Yes (Other)
  Sender: FDA-Public Use
  Company Number: CHPA2010US04491

PATIENT
  Age: 25 Year
  Sex: Female
  Weight: 77.098 kg

DRUGS (4)
  1. THERAFLU WARMING RELIEF COLD + CHEST CONG (NCH) [Suspect]
     Indication: COUGH
     Dosage: 6 TSP, THREE TIMES
     Route: 048
     Dates: start: 20100302, end: 20100303
  2. THERAFLU WARMING RELIEF COLD + CHEST CONG (NCH) [Suspect]
     Indication: RESPIRATORY TRACT CONGESTION
  3. LABETALOL HCL [Concomitant]
     Indication: HYPERTENSION
  4. DOLOBID [Concomitant]
     Indication: PAIN

REACTIONS (5)
  - DYSPNOEA [None]
  - HYPERSENSITIVITY [None]
  - LIP SWELLING [None]
  - OEDEMA PERIPHERAL [None]
  - RASH [None]
